FAERS Safety Report 22172826 (Version 1)
Quarter: 2023Q2

REPORT INFORMATION
  Report Type: Spontaneous
  Country: US (occurrence: US)
  Receive Date: 20230404
  Receipt Date: 20230404
  Transmission Date: 20230722
  Serious: Yes (Life-Threatening, Hospitalization, Other)
  Sender: FDA-Public Use
  Company Number: US-MLMSERVICE-20230324-4185967-1

PATIENT
  Age: 59 Year
  Sex: Male

DRUGS (8)
  1. ASPIRIN [Interacting]
     Active Substance: ASPIRIN
     Indication: Atrial fibrillation
     Dosage: 81 MG, QD
  2. ASPIRIN [Interacting]
     Active Substance: ASPIRIN
     Indication: Cardiac ventricular thrombosis
     Dosage: 81 MG, QD
  3. TICAGRELOR [Interacting]
     Active Substance: TICAGRELOR
     Indication: Atrial fibrillation
     Dosage: UNK
  4. TICAGRELOR [Interacting]
     Active Substance: TICAGRELOR
     Indication: Cardiac ventricular thrombosis
  5. XARELTO [Interacting]
     Active Substance: RIVAROXABAN
     Indication: Cardiac ventricular thrombosis
  6. XARELTO [Interacting]
     Active Substance: RIVAROXABAN
     Indication: Atrial fibrillation
  7. HEPARIN [Suspect]
     Active Substance: HEPARIN SODIUM
     Indication: Cardiac ventricular thrombosis
     Route: 042
  8. HEPARIN [Suspect]
     Active Substance: HEPARIN SODIUM
     Indication: Atrial fibrillation

REACTIONS (3)
  - Intestinal haematoma [Recovered/Resolved]
  - Blood loss anaemia [None]
  - Drug interaction [None]
